FAERS Safety Report 16928444 (Version 1)
Quarter: 2019Q4

REPORT INFORMATION
  Report Type: Spontaneous
  Country: US (occurrence: US)
  Receive Date: 20190823
  Receipt Date: 20190823
  Transmission Date: 20200122
  Serious: Yes (Hospitalization)
  Sender: FDA-Public Use
  Company Number: None

PATIENT
  Age: 79 Year
  Sex: Male
  Weight: 101 kg

DRUGS (1)
  1. FENTANYL. [Suspect]
     Active Substance: FENTANYL
     Indication: SURGERY
     Dates: start: 20190812, end: 20190812

REACTIONS (9)
  - Nausea [None]
  - Hypertension [None]
  - Hyperhidrosis [None]
  - Unresponsive to stimuli [None]
  - Palpitations [None]
  - Incontinence [None]
  - Diarrhoea [None]
  - Vomiting [None]
  - Tachycardia [None]

NARRATIVE: CASE EVENT DATE: 20190812
